FAERS Safety Report 19699523 (Version 4)
Quarter: 2021Q3

REPORT INFORMATION
  Report Type: Spontaneous
  Country: US (occurrence: US)
  Receive Date: 20210813
  Receipt Date: 20210927
  Transmission Date: 20211014
  Serious: Yes (Life-Threatening, Hospitalization)
  Sender: FDA-Public Use
  Company Number: US-PFIZER INC-2020263424

PATIENT
  Age: 43 Year
  Sex: Female

DRUGS (2)
  1. LYRICA [Suspect]
     Active Substance: PREGABALIN
     Indication: PAIN
     Dosage: 150 MG, 2X/DAY (AS NEEDED)
  2. LYRICA [Suspect]
     Active Substance: PREGABALIN
     Dosage: 300 MG, 2X/DAY[1 PO (ORAL) Q12 PRN (EVERY 12 PM)]
     Route: 048

REACTIONS (4)
  - Pneumonia [Unknown]
  - Rash [Unknown]
  - Dyspnoea [Unknown]
  - Pruritus [Unknown]
